APPROVED DRUG PRODUCT: TOBRAMYCIN SULFATE IN SODIUM CHLORIDE 0.9% IN PLASTIC CONTAINER
Active Ingredient: TOBRAMYCIN SULFATE
Strength: EQ 1.6MG BASE/ML
Dosage Form/Route: INJECTABLE;INJECTION
Application: A063081 | Product #006
Applicant: HOSPIRA INC
Approved: Jun 2, 1993 | RLD: No | RS: No | Type: DISCN